FAERS Safety Report 9922653 (Version 2)
Quarter: 2014Q2

REPORT INFORMATION
  Report Type: Spontaneous
  Country: ES (occurrence: ES)
  Receive Date: 20140225
  Receipt Date: 20140606
  Transmission Date: 20141212
  Serious: Yes (Death, Hospitalization)
  Sender: FDA-Public Use
  Company Number: ES-CUBIST PHARMACEUTICAL, INC.-2014CBST000293

PATIENT
  Sex: 0

DRUGS (48)
  1. CUBICIN [Suspect]
     Indication: ENDOCARDITIS ENTEROCOCCAL
     Dosage: 8 MG/KG DAILY ON MONDAY, WEDNESDAY, FRIDAY
     Route: 042
     Dates: start: 20110908, end: 20110928
  2. CUBICIN [Suspect]
     Indication: ENDOCARDITIS
  3. CUBICIN [Suspect]
     Indication: OFF LABEL USE
  4. GLUCOSE + CLORURO POTASICO [Concomitant]
     Indication: PRODUCT USED FOR UNKNOWN INDICATION
     Dosage: GLUCOSE 5 % 500 ML + CLORURO POTASICO 2M 10 MEQ/5 ML AMP (KCL) 40 MEQ EVERY/ 24 H
     Route: 042
     Dates: start: 20110928, end: 20111003
  5. DOBUTAMINE [Concomitant]
     Indication: PRODUCT USED FOR UNKNOWN INDICATION
     Dosage: DOBUTAMINE 500 MG + GLUCOSE 5 % 250 ML EVERY/ 24 H
     Route: 042
     Dates: start: 20110928, end: 20111003
  6. NORADRENALINE                      /00127501/ [Concomitant]
     Indication: PRODUCT USED FOR UNKNOWN INDICATION
     Dosage: NORADRENALINEE 0.1%10 ML AMP (NORADRENALINE) 10 MG + GLUCOSE 5 % 100 ML EVERY/ 24 H
     Route: 042
     Dates: start: 20110928, end: 20111018
  7. ULTIVA [Concomitant]
     Indication: PRODUCT USED FOR UNKNOWN INDICATION
     Dosage: ULTIVA VIAL 5 MG 10 ML (REMIPHENTANYL) 10 MG + FISIOLOGICO 100 ML EVERY/ 24 H
     Route: 042
     Dates: start: 20110928, end: 20111005
  8. INSULINE ACTRAPID [Concomitant]
     Indication: PRODUCT USED FOR UNKNOWN INDICATION
     Dosage: INSULINE ACTRAPID 100 UI/ML VIAL (INSULINE) 50 UI + FISIOLOGICO 100 ML EVERY/ 24 H
     Route: 042
     Dates: start: 20110928, end: 20111018
  9. INSULINE ACTRAPID [Concomitant]
     Dosage: INSULINE ACTRAPID 10 UI EVERY/ 24 H
     Route: 058
     Dates: start: 20111007, end: 20111007
  10. CEFTRIAXONE [Concomitant]
     Indication: PRODUCT USED FOR UNKNOWN INDICATION
     Dosage: CEFTRIAXONE 2 G VIAL + FISIOLOGICO 50 ML EVERY/ 24 H
     Route: 042
     Dates: start: 20110928, end: 20110930
  11. HEPARIN SODIUM [Concomitant]
     Indication: PRODUCT USED FOR UNKNOWN INDICATION
     Dosage: FISIOLOGICO 250 ML + SODIC HEAPRINE 5% VIAL 5 ML 25000 UI EVERY/ 24 H
     Route: 042
     Dates: start: 20110929, end: 20111005
  12. VENOFER [Concomitant]
     Indication: PRODUCT USED FOR UNKNOWN INDICATION
     Dosage: VENOFER 20 MG/ML 5 ML AMP (HIERRO(III),HIDROXIDOSACAROSA) 1
     Route: 042
     Dates: start: 20110429, end: 20111003
  13. EPREX [Concomitant]
     Indication: PRODUCT USED FOR UNKNOWN INDICATION
     Dosage: EPREX 4.000 UI/0,4 ML JER (EPOETINA ALFA) EACH/ WEEK
     Route: 042
     Dates: start: 20110701, end: 20110928
  14. EPREX [Concomitant]
     Dosage: EPREX 4.000 UI/0,4 ML JER (EPOETINA ALFA) 4000 UI EVERY/ 24 H
     Route: 042
     Dates: start: 20111002, end: 20111003
  15. ZEMPLAR [Concomitant]
     Indication: PRODUCT USED FOR UNKNOWN INDICATION
     Dosage: ZEMPLAR 2 MCG/ML VIAL 1 ML (PARICALCITOL) 8 VIAL EVERY/30 DAYS
     Route: 042
     Dates: start: 20110429, end: 20111003
  16. INS. NOVORAPID [Concomitant]
     Indication: PRODUCT USED FOR UNKNOWN INDICATION
     Dosage: INS. NOVORAPID 100 UI/ML PEN 3 ML (INSULINA ASPART) 10 UI EVERY/8 H
     Route: 058
     Dates: start: 20110901, end: 20110928
  17. CEPRANDAL [Concomitant]
     Indication: PRODUCT USED FOR UNKNOWN INDICATION
     Dosage: CEPRANDAL 20 MG CAP (OMEPRAZOL) 1 CAP EVERY/24 H
     Route: 048
     Dates: start: 20110901, end: 20110928
  18. INS LANTUS [Concomitant]
     Indication: PRODUCT USED FOR UNKNOWN INDICATION
     Dosage: INS. LANTUS 100 UI/ML PLUMA SOLOSTAR 3ML (INSULINA GLARGINA) 12 UI EVERY/24H
     Route: 058
     Dates: start: 20110901, end: 20110928
  19. CARDYL [Concomitant]
     Indication: PRODUCT USED FOR UNKNOWN INDICATION
     Dosage: CARDYL 10 MG COMP (ATORVASTATINE) 10 MG EVERY/24 H
     Route: 048
     Dates: start: 20110901, end: 20110928
  20. CARDYL [Concomitant]
     Dosage: CARDYL 10 MG COMP (ATORVASTATINA) 10 MG EVERY/ 24 H
     Route: 048
     Dates: start: 20111002, end: 20111004
  21. CARVEDILOL [Concomitant]
     Indication: PRODUCT USED FOR UNKNOWN INDICATION
     Dosage: CARVEDILOL 25 MG COMP (CARVEDILOL) 1 COMP EVERY/12H ON MONDAY, WEDNESDAY, FRIDAY
     Route: 048
     Dates: start: 20110901, end: 20110928
  22. CARVEDILOL [Concomitant]
     Dosage: CARVEDILOL 6.25 MG COMP (CARVEDILOL) 6,3 MG EVERY/ 12 H
     Route: 048
     Dates: start: 20111002, end: 20111004
  23. MASTICAL [Concomitant]
     Indication: PRODUCT USED FOR UNKNOWN INDICATION
     Dosage: MASTICAL COMPR (CALCIO,CARBONATO) 1 COMP EVERY/12 H
     Route: 048
     Dates: start: 20110901, end: 20110928
  24. URSOBILANE [Concomitant]
     Indication: PRODUCT USED FOR UNKNOWN INDICATION
     Dosage: URSOBILANE 300 MG CAP (URSODESOXICOLICO,ACIDO) 1 CAP EVERY/12 H
     Route: 065
     Dates: start: 20110901, end: 20110928
  25. VANCOMYCIN [Concomitant]
     Indication: PRODUCT USED FOR UNKNOWN INDICATION
     Dosage: VANCOMYCIN 500 MG VIAL (VANCOMYCIN) 1 VIAL ON MONDAY, WEDNESDAY, FRIDAY
     Route: 042
     Dates: start: 20110901, end: 20110928
  26. TAVANIC [Concomitant]
     Indication: PRODUCT USED FOR UNKNOWN INDICATION
     Dosage: TAVANIC 500 MG COMP (LEVOFLOXACINE) 250 MG ON MONDAY, WEDNESDAY, FRIDAY
     Route: 048
     Dates: start: 20110901, end: 20110928
  27. PERFALGAN [Concomitant]
     Indication: PRODUCT USED FOR UNKNOWN INDICATION
     Dosage: PERFALGAN 10 MG/ML VIAL (PARACETAMOL) 1000 MG EVERY/ 8 H
     Route: 042
     Dates: start: 20110901, end: 20111004
  28. PERFALGAN [Concomitant]
     Dosage: PERFALGAN 10 MG/ML VIAL (PARACETAMOL) 1 VIAL EVERY/ 8 H
     Route: 042
     Dates: start: 20111004, end: 20111018
  29. GENTAMICIN [Concomitant]
     Indication: PRODUCT USED FOR UNKNOWN INDICATION
     Dosage: GENTAMICIN 80 MG/80 ML VIAL (GENTAMICIN) 60 MG ON MONDAY, WEDNESDAY, FRIDAY
     Route: 042
     Dates: start: 20110905, end: 20110928
  30. NOLOTIL                            /06276702/ [Concomitant]
     Indication: PRODUCT USED FOR UNKNOWN INDICATION
     Dosage: NOLOTIL AMP 2 G/5 ML (METAMIZOL) 2000 MG EVERY/ 8 H
     Route: 042
     Dates: start: 20110911, end: 20110928
  31. CLEXANE [Concomitant]
     Indication: PRODUCT USED FOR UNKNOWN INDICATION
     Dosage: CLEXANE 20 MG/0,2 ML JERINGA (ENOXAPARINE) 20 MG EVERY/24 H
     Route: 058
     Dates: start: 20110914, end: 20111003
  32. GOBEMICINA                         /00000502/ [Concomitant]
     Indication: PRODUCT USED FOR UNKNOWN INDICATION
     Dosage: GOBEMICINA1 G VIAL (AMPICILLIN) 2 VIAL EVERY/12 H
     Route: 042
     Dates: start: 20110915, end: 20111014
  33. ANAGASTRA [Concomitant]
     Indication: PRODUCT USED FOR UNKNOWN INDICATION
     Dosage: ANAGASTRA 40 MG VIAL (PANTOPRAZOL) 1 VIAL EVERY/24HR
     Route: 042
     Dates: start: 20110927, end: 20111001
  34. ANAGASTRA [Concomitant]
     Dosage: ANAGASTRA 40 MG VIAL (PANTOPRAZOL) 40 MG EVERY/ 24 H
     Route: 042
     Dates: start: 20111004, end: 20111008
  35. PRIMPERAN [Concomitant]
     Indication: PRODUCT USED FOR UNKNOWN INDICATION
     Dosage: PRIMPERAN 10 MG/2 ML AMP (METOCLOPRAMIDE) 1 AMP ONE DOSE
     Route: 042
     Dates: start: 20110927, end: 20110928
  36. LORAZEPAM [Concomitant]
     Indication: PRODUCT USED FOR UNKNOWN INDICATION
     Dosage: LORAZEPAM COMP 1 MG (LORAZEPAM) 0,5 COMP EVERY/ 12 H
     Route: 048
     Dates: start: 20110927, end: 20110928
  37. PROPOFOL LIPURO [Concomitant]
     Indication: PRODUCT USED FOR UNKNOWN INDICATION
     Dosage: PROPOFOL LIPERO 2% VIAL 50 ML (PROPOFOL) 1 VIAL EVERY/ 24 H
     Route: 042
     Dates: start: 20110928, end: 20111003
  38. MORPHINE [Concomitant]
     Indication: PRODUCT USED FOR UNKNOWN INDICATION
     Dosage: MORPHINE 1% AMP 1 ML (MORPHINE) 2-8 MG EVERY/ 6 H
     Route: 042
     Dates: start: 20110928, end: 20111004
  39. TERMALGIN [Concomitant]
     Indication: PRODUCT USED FOR UNKNOWN INDICATION
     Dosage: TERMALGIN COMP 500 MG (PARACETAMOL) 500 MG EVERY/ 8 H
     Route: 048
     Dates: start: 20111002, end: 20111004
  40. PANTECTA [Concomitant]
     Indication: PRODUCT USED FOR UNKNOWN INDICATION
     Dosage: PANTECTA COMP 40 MG (PANTOPRAZOL) 40 MG EVERY/ 24 H
     Route: 048
     Dates: start: 20111001, end: 20111004
  41. ALBUNORM                           /01102501/ [Concomitant]
     Indication: PRODUCT USED FOR UNKNOWN INDICATION
     Dosage: ALBUNORM 20% VIAL 50 ML (ALBUMIN) 1 G EVERY/ 8 H
     Route: 042
     Dates: start: 20110930, end: 20111004
  42. ATROVENT [Concomitant]
     Indication: PRODUCT USED FOR UNKNOWN INDICATION
     Dosage: ATROVENT MONODOSIS SOL. 500 MCG (IPRATROPIO,BROMURO) 500 MCG EVERY/ 8H, NEBULISATION
     Dates: start: 20111003, end: 20111008
  43. FLUMIL                             /00082801/ [Concomitant]
     Indication: PRODUCT USED FOR UNKNOWN INDICATION
     Dosage: FLUMIL AMP 300 MG/3 ML (ACETILCYSTEIN) 1 AMP EVERY/ 8 H, NEBULISATION
     Dates: start: 20111003, end: 20111018
  44. KCL [Concomitant]
     Indication: PRODUCT USED FOR UNKNOWN INDICATION
     Dosage: KCL 10 MEQ EVERY/ 4 H
     Route: 042
     Dates: start: 20111004, end: 20111018
  45. FOSFATO MONOSODICO FRESENIUS KABI [Concomitant]
     Indication: PRODUCT USED FOR UNKNOWN INDICATION
     Dosage: FOSFATO MONOSODICO 1 M AMP 10 ML (SODIO,FOSFATO MONOBASICO) 1 AMP EVERY/ 4 H
     Route: 042
     Dates: start: 20111004, end: 20111018
  46. DIGOXIN [Concomitant]
     Indication: PRODUCT USED FOR UNKNOWN INDICATION
     Dosage: DIGOXIN 0,5 MG/2 ML AMP IV (DIGOXIN) 0,5 AMP EVERY/ 24 H
     Route: 042
     Dates: start: 20111004, end: 20111007
  47. ZANTAC [Concomitant]
     Indication: PRODUCT USED FOR UNKNOWN INDICATION
     Dosage: ZANTAC COMP 300 MG (RANITIDINE) 1 COMP EVERY/ 24 H
     Route: 048
     Dates: start: 20111009, end: 20111014
  48. ACFOL [Concomitant]
     Indication: PRODUCT USED FOR UNKNOWN INDICATION
     Dosage: ACFOL 5 MG COMP (FOLIC ACID) 5 MG EVERY/ 24 H
     Route: 048
     Dates: start: 20111009, end: 20111018

REACTIONS (3)
  - Multi-organ failure [Fatal]
  - Enterococcal bacteraemia [Unknown]
  - Drug ineffective for unapproved indication [Unknown]
